FAERS Safety Report 8249540-8 (Version None)
Quarter: 2012Q2

REPORT INFORMATION
  Report Type: 
  Country: None (occurrence: None)
  Receive Date: 20120402
  Receipt Date: 20120322
  Transmission Date: 20120825
  Serious: Yes (Death, Other)
  Sender: FDA-Public Use
  Company Number: JP-BAXTER-2012BAX000401

PATIENT
  Sex: Male

DRUGS (3)
  1. ADVATE [Suspect]
     Route: 042
     Dates: start: 20120101
  2. ADVATE [Suspect]
     Route: 042
     Dates: start: 20120101
  3. ADVATE [Suspect]
     Route: 042
     Dates: start: 20120101

REACTIONS (2)
  - HAEMORRHAGE [None]
  - SHOCK HAEMORRHAGIC [None]
